FAERS Safety Report 20624716 (Version 1)
Quarter: 2022Q1

REPORT INFORMATION
  Report Type: Spontaneous
  Country: IN (occurrence: IN)
  Receive Date: 20220323
  Receipt Date: 20220323
  Transmission Date: 20220423
  Serious: Yes (Other)
  Sender: FDA-Public Use
  Company Number: IN-SUN PHARMACEUTICAL INDUSTRIES LTD-2022R1-330126

PATIENT
  Age: 22 Year
  Sex: Male

DRUGS (2)
  1. PENTAZOCINE [Suspect]
     Active Substance: PENTAZOCINE
     Indication: Product used for unknown indication
     Dosage: UNK
     Route: 042
  2. PENTAZOCINE [Suspect]
     Active Substance: PENTAZOCINE
     Dosage: UNK
     Route: 058

REACTIONS (2)
  - Myiasis [Recovering/Resolving]
  - Skin ulcer [Recovering/Resolving]
